FAERS Safety Report 19274706 (Version 1)
Quarter: 2021Q2

REPORT INFORMATION
  Report Type: Report from Study
  Country: US (occurrence: US)
  Receive Date: 20210519
  Receipt Date: 20210519
  Transmission Date: 20210717
  Serious: Yes (Other)
  Sender: FDA-Public Use
  Company Number: US-CLOVIS ONCOLOGY-CLO-2021-000789

PATIENT
  Sex: Female

DRUGS (1)
  1. RUBRACA [Suspect]
     Active Substance: RUCAPARIB CAMSYLATE
     Indication: FALLOPIAN TUBE CANCER
     Dosage: 500 MILLIGRAM, BID
     Route: 048
     Dates: start: 2019

REACTIONS (9)
  - Dizziness [Unknown]
  - Blood iron decreased [Unknown]
  - Hypophagia [Unknown]
  - Constipation [Unknown]
  - Product dose omission in error [Unknown]
  - Dyspepsia [Unknown]
  - Asthenia [Unknown]
  - Alopecia [Unknown]
  - Abdominal pain [Unknown]
